FAERS Safety Report 10185442 (Version 1)
Quarter: 2014Q2

REPORT INFORMATION
  Report Type: Spontaneous
  Country: US (occurrence: US)
  Receive Date: 20140521
  Receipt Date: 20140521
  Transmission Date: 20141212
  Serious: No
  Sender: FDA-Public Use
  Company Number: US-PFIZER INC-2014138543

PATIENT
  Age: 49 Year
  Sex: Female
  Weight: 65.31 kg

DRUGS (2)
  1. EFFEXOR XR [Suspect]
     Indication: DEPRESSION
     Dosage: (150MG IN THE MORNING AND 112.5MG AT NIGHT), 2X/DAY
  2. EFFEXOR XR [Suspect]
     Indication: ANXIETY

REACTIONS (1)
  - Drug effect incomplete [Unknown]
